FAERS Safety Report 5369708-8 (Version None)
Quarter: 2007Q2

REPORT INFORMATION
  Report Type: 
  Country: None (occurrence: None)
  Receive Date: 20070625
  Receipt Date: 20070611
  Transmission Date: 20071010
  Serious: Yes (Hospitalization, Other)
  Sender: FDA-Public Use
  Company Number: BR-SHR-BR-2007-021133

PATIENT
  Age: 51 Year
  Sex: Female
  Weight: 78 kg

DRUGS (2)
  1. BETASERON [Suspect]
     Dosage: 8 MIU, EVERY 2D
     Route: 058
     Dates: start: 20010101
  2. SYNTHROID [Concomitant]
     Dosage: 1 TAB(S), 1X/DAY
     Route: 048

REACTIONS (2)
  - BLOOD CALCIUM INCREASED [None]
  - NEPHROLITHIASIS [None]
